FAERS Safety Report 23107055 (Version 1)
Quarter: 2023Q4

REPORT INFORMATION
  Report Type: Spontaneous
  Country: US (occurrence: US)
  Receive Date: 20231026
  Receipt Date: 20231026
  Transmission Date: 20240110
  Serious: No
  Sender: FDA-Public Use
  Company Number: US-SA-SAC20231024000234

PATIENT
  Sex: Female

DRUGS (4)
  1. KEVZARA [Suspect]
     Active Substance: SARILUMAB
     Indication: Rheumatoid arthritis
     Dosage: 200 MG, QOW
     Route: 058
     Dates: start: 202105
  2. NINTEDANIB [Suspect]
     Active Substance: NINTEDANIB
     Dosage: UNK
  3. PIRFENIDONE [Concomitant]
     Active Substance: PIRFENIDONE
  4. OFEV [Concomitant]
     Active Substance: NINTEDANIB

REACTIONS (2)
  - Nausea [Unknown]
  - Dizziness [Unknown]
